FAERS Safety Report 9503065 (Version 1)
Quarter: 2013Q1

REPORT INFORMATION
  Report Type: Spontaneous
  Country: US (occurrence: None)
  Receive Date: 20130107
  Receipt Date: 20130107
  Transmission Date: 20140127
  Serious: No
  Sender: FDA-Public Use
  Company Number: PHEH2012US020346

PATIENT
  Age: 51 Year
  Sex: Female

DRUGS (7)
  1. GILENYA [Suspect]
     Indication: MULTIPLE SCLEROSIS
     Route: 048
     Dates: start: 20121011
  2. BACLOFEN (BACLOFEN) [Concomitant]
  3. OXYBUTYNIN (OXYBUTYNIN) [Concomitant]
  4. GABAPENTIN (GABAPENTIN) [Concomitant]
  5. PROZAC (FLUOXETINE HYDROCHLORIDE) [Concomitant]
  6. CLONAZEPAM (CLONAZEPAM) [Concomitant]
  7. AMITRIPTYLINE (AMITRIPTYLINE) [Concomitant]

REACTIONS (1)
  - Insomnia [None]
